FAERS Safety Report 17845990 (Version 1)
Quarter: 2020Q2

REPORT INFORMATION
  Report Type: Report from Study
  Country: None (occurrence: BR)
  Receive Date: 20200601
  Receipt Date: 20200601
  Transmission Date: 20200714
  Serious: Yes (Other)
  Sender: FDA-Public Use
  Company Number: BR-ABBVIE-20K-020-3421249-00

PATIENT
  Sex: Male

DRUGS (3)
  1. HUMIRA [Suspect]
     Active Substance: ADALIMUMAB
     Route: 058
  2. HUMIRA [Suspect]
     Active Substance: ADALIMUMAB
     Indication: CROHN^S DISEASE
     Dosage: LOADING DOSE - WEEK 00
     Route: 058
  3. HUMIRA [Suspect]
     Active Substance: ADALIMUMAB
     Dosage: LOADING DOSE - WEEK 02
     Route: 058

REACTIONS (9)
  - Adverse event [Unknown]
  - Gingival discolouration [Unknown]
  - Enteritis [Unknown]
  - Erythema [Unknown]
  - Limb injury [Recovered/Resolved]
  - Skin cancer [Unknown]
  - Skin wound [Not Recovered/Not Resolved]
  - Rash macular [Not Recovered/Not Resolved]
  - Rash macular [Unknown]
